FAERS Safety Report 6567710-1 (Version None)
Quarter: 2010Q1

REPORT INFORMATION
  Report Type: 
  Country: None (occurrence: None)
  Receive Date: 20100203
  Receipt Date: 20100127
  Transmission Date: 20100710
  Serious: Yes (Other)
  Sender: FDA-Public Use
  Company Number: JP-PFIZER INC-2009314378

PATIENT
  Age: 38 Year
  Sex: Female
  Weight: 44 kg

DRUGS (4)
  1. CHAMPIX [Suspect]
     Indication: SMOKING CESSATION THERAPY
     Dosage: 0.5 MG, 1X/DAY
     Dates: start: 20091209, end: 20091215
  2. MYSLEE [Concomitant]
     Dosage: UNK
     Route: 048
     Dates: start: 20070911
  3. LUVOX [Concomitant]
     Dosage: UNK
     Route: 048
     Dates: start: 20070911
  4. CINAL [Concomitant]
     Dosage: UNK
     Dates: start: 20091208

REACTIONS (3)
  - MALAISE [None]
  - MENTAL DISORDER [None]
  - PAROSMIA [None]
